FAERS Safety Report 20224026 (Version 1)
Quarter: 2021Q4

REPORT INFORMATION
  Report Type: Spontaneous
  Country: US (occurrence: None)
  Receive Date: 20211223
  Receipt Date: 20211223
  Transmission Date: 20220303
  Serious: Yes (Death, Other)
  Sender: FDA-Public Use
  Company Number: None

PATIENT
  Age: 61 Year
  Sex: Male
  Weight: 77 kg

DRUGS (1)
  1. BARICITINIB [Suspect]
     Active Substance: BARICITINIB
     Indication: COVID-19
     Dosage: FREQUENCY : DAILY;?
     Route: 048
     Dates: start: 20211204, end: 20211217

REACTIONS (4)
  - Staphylococcus test positive [None]
  - Condition aggravated [None]
  - Pulseless electrical activity [None]
  - Bradycardia [None]

NARRATIVE: CASE EVENT DATE: 20211220
